FAERS Safety Report 25071498 (Version 1)
Quarter: 2025Q1

REPORT INFORMATION
  Report Type: Spontaneous
  Country: DE (occurrence: DE)
  Receive Date: 20250312
  Receipt Date: 20250312
  Transmission Date: 20250409
  Serious: Yes (Other)
  Sender: JOHNSON AND JOHNSON
  Company Number: DE-BAYER-2025A032458

PATIENT
  Sex: Male

DRUGS (1)
  1. XARELTO [Suspect]
     Active Substance: RIVAROXABAN
     Indication: Cerebrovascular accident
     Dosage: 20 MG, QD
     Route: 048
     Dates: start: 20240412, end: 20250305

REACTIONS (6)
  - Erectile dysfunction [Unknown]
  - Asthenia [Unknown]
  - Pollakiuria [Unknown]
  - White coat hypertension [Unknown]
  - Listless [Unknown]
  - Apathy [Unknown]
